FAERS Safety Report 6337998-0 (Version None)
Quarter: 2009Q3

REPORT INFORMATION
  Report Type: 
  Country: None (occurrence: None)
  Receive Date: 20090902
  Receipt Date: 20090820
  Transmission Date: 20100115
  Serious: Yes (Other)
  Sender: FDA-Public Use
  Company Number: GB-PFIZER INC-2009247977

PATIENT
  Age: 38 Year

DRUGS (3)
  1. CHAMPIX [Suspect]
     Indication: SMOKING CESSATION THERAPY
     Dosage: 0.5 MG, 2X/DAY
     Route: 048
     Dates: start: 20081230, end: 20090601
  2. CHAMPIX [Suspect]
     Dosage: 1 MG, 2X/DAY
     Route: 048
  3. SALBUTAMOL [Concomitant]
     Indication: ASTHMA
     Dosage: 2 DF, 4X/DAY
     Route: 055
     Dates: start: 20030915

REACTIONS (1)
  - HYPOTHYROIDISM [None]
